FAERS Safety Report 9580784 (Version 1)
Quarter: 2013Q4

REPORT INFORMATION
  Report Type: Spontaneous
  Country: US (occurrence: None)
  Receive Date: 20131001
  Receipt Date: 20131001
  Transmission Date: 20140711
  Serious: Yes (Disabling)
  Sender: FDA-Public Use
  Company Number: None

PATIENT
  Age: 61 Year
  Sex: Female
  Weight: 57.15 kg

DRUGS (1)
  1. ZIPRASIDONE HCL [Suspect]
     Indication: DEPRESSION
     Dosage: 1 PILL
     Route: 048
     Dates: start: 20130816, end: 20131001

REACTIONS (3)
  - Nodule [None]
  - Rash pustular [None]
  - Weight increased [None]
